FAERS Safety Report 20189293 (Version 2)
Quarter: 2022Q1

REPORT INFORMATION
  Report Type: Spontaneous
  Country: CA (occurrence: CA)
  Receive Date: 20211215
  Receipt Date: 20220215
  Transmission Date: 20220423
  Serious: Yes (Death, Hospitalization, Other)
  Sender: FDA-Public Use
  Company Number: CA-NAPPMUNDI-GBR-2021-0093249

PATIENT
  Age: 81 Year
  Sex: Female

DRUGS (9)
  1. MORPHINE SULFATE [Suspect]
     Active Substance: MORPHINE SULFATE
     Indication: Product used for unknown indication
     Dosage: UNKNOWN
     Route: 065
  2. SANDOSTATIN [Suspect]
     Active Substance: OCTREOTIDE ACETATE
     Indication: Neuroendocrine tumour
     Dosage: 30 MG, MONTHLY
     Route: 030
  3. SANDOSTATIN [Suspect]
     Active Substance: OCTREOTIDE ACETATE
     Dosage: 30 MG, MONTHLY
     Route: 030
  4. SANDOSTATIN [Suspect]
     Active Substance: OCTREOTIDE ACETATE
     Dosage: 30 MG, MONTHLY
     Route: 030
  5. SANDOSTATIN [Suspect]
     Active Substance: OCTREOTIDE ACETATE
     Dosage: 60 MG, UNK
     Route: 030
  6. SANDOSTATIN [Suspect]
     Active Substance: OCTREOTIDE ACETATE
     Dosage: 60 MG, MONTHLY
     Route: 030
  7. ENTOCORT [Concomitant]
     Active Substance: BUDESONIDE
     Indication: Product used for unknown indication
     Dosage: 9 MG, DAILY
     Route: 065
  8. ENTOCORT [Concomitant]
     Active Substance: BUDESONIDE
     Dosage: 9 MG, DAILY
     Route: 065
  9. ENTOCORT [Concomitant]
     Active Substance: BUDESONIDE
     Dosage: UNK
     Route: 065

REACTIONS (25)
  - Food allergy [Fatal]
  - Abdominal pain [Fatal]
  - Abdominal pain upper [Fatal]
  - Back pain [Fatal]
  - Blood pressure increased [Fatal]
  - Body temperature decreased [Fatal]
  - Colitis [Fatal]
  - Death [Fatal]
  - Decreased appetite [Fatal]
  - Dizziness [Fatal]
  - Heart rate decreased [Fatal]
  - Heart rate increased [Fatal]
  - Illness [Fatal]
  - Influenza like illness [Fatal]
  - Injection site swelling [Fatal]
  - Nasopharyngitis [Fatal]
  - Nausea [Fatal]
  - Neck pain [Fatal]
  - Pain [Fatal]
  - Rash [Fatal]
  - Skin turgor decreased [Fatal]
  - Urticaria [Fatal]
  - Weight decreased [Fatal]
  - Spinal pain [Fatal]
  - Malaise [Fatal]
